FAERS Safety Report 24970772 (Version 2)
Quarter: 2025Q3

REPORT INFORMATION
  Report Type: Report from Study
  Country: KR (occurrence: KR)
  Receive Date: 20250214
  Receipt Date: 20250810
  Transmission Date: 20251021
  Serious: Yes (Other)
  Sender: ALEXION PHARMACEUTICALS
  Company Number: KR-AstraZeneca-CH-00788481A

PATIENT
  Age: 63 Year
  Sex: Female

DRUGS (2)
  1. TAGRISSO [Suspect]
     Active Substance: OSIMERTINIB
     Indication: Lung neoplasm malignant
     Dosage: 80 MILLIGRAM, QD
     Dates: start: 20250115
  2. IRESSA [Suspect]
     Active Substance: GEFITINIB
     Indication: Lung neoplasm malignant

REACTIONS (12)
  - Diabetes mellitus [Not Recovered/Not Resolved]
  - Neck pain [Recovered/Resolved]
  - Hypertension [Recovering/Resolving]
  - Thyroid cancer [Not Recovered/Not Resolved]
  - Headache [Recovered/Resolved]
  - Mouth ulceration [Recovered/Resolved]
  - Nail disorder [Recovering/Resolving]
  - Pruritus [Recovering/Resolving]
  - Alopecia [Not Recovered/Not Resolved]
  - Rash [Recovering/Resolving]
  - Anal rash [Recovering/Resolving]
  - Musculoskeletal stiffness [Recovered/Resolved]

NARRATIVE: CASE EVENT DATE: 20250117
